FAERS Safety Report 4649692-2 (Version None)
Quarter: 2005Q2

REPORT INFORMATION
  Report Type: 
  Country: None (occurrence: None)
  Receive Date: 20050502
  Receipt Date: 20050426
  Transmission Date: 20051028
  Serious: Yes (Hospitalization, Other)
  Sender: FDA-Public Use
  Company Number: 200513530US

PATIENT
  Age: 85 Year
  Sex: Female
  Weight: 70 kg

DRUGS (11)
  1. LOVENOX [Suspect]
     Indication: PULMONARY EMBOLISM
     Route: 058
     Dates: start: 20050411, end: 20050419
  2. DIAGNOSTIC RADIOPHARMACEUTICALS [Suspect]
     Indication: COMPUTERISED TOMOGRAM
     Dosage: DOSE: NOT PROVIDED
  3. CLONIDINE [Concomitant]
     Dosage: DOSE: NOT PROVIDED
  4. NIFEDIPINE [Concomitant]
     Dosage: DOSE: NOT PROVIDED
  5. ROCEPHIN [Concomitant]
     Dosage: DOSE: NOT PROVIDED
  6. BIAXIN [Concomitant]
     Dosage: DOSE: NOT PROVIDED
  7. SOLU-MEDROL [Concomitant]
     Dosage: DOSE: NOT PROVIDED
     Route: 042
  8. IRBESARTAN [Concomitant]
     Dosage: DOSE: NOT PROVIDED
  9. LIPITOR [Concomitant]
     Dosage: DOSE: NOT PROVIDED
  10. ASPIRIN [Concomitant]
     Dosage: DOSE: NOT PROVIDED
  11. XOPENEX [Concomitant]
     Dosage: DOSE: NOT PROVIDED

REACTIONS (9)
  - ANAEMIA [None]
  - BLOOD CREATININE INCREASED [None]
  - DIALYSIS [None]
  - DYSPNOEA [None]
  - HAEMATOCRIT DECREASED [None]
  - HAEMOGLOBIN DECREASED [None]
  - MUSCLE HAEMORRHAGE [None]
  - RENAL FAILURE [None]
  - RESPIRATORY FAILURE [None]
